FAERS Safety Report 5510853-1 (Version None)
Quarter: 2007Q4

REPORT INFORMATION
  Report Type: 
  Country: None (occurrence: None)
  Receive Date: 20071107
  Receipt Date: 20071023
  Transmission Date: 20080405
  Serious: Yes (Hospitalization)
  Sender: FDA-Public Use
  Company Number: 163388USA

PATIENT
  Age: 53 Year
  Sex: Female

DRUGS (2)
  1. RIBAVIRIN [Suspect]
     Dosage: 1200 MG (1200 MG, 1 IN 1 D)
  2. PEG-INTRON [Suspect]
     Dosage: 25.7143 MCG (180 MCG, 1 IN 1 WK)

REACTIONS (3)
  - NEUTROPENIC COLITIS [None]
  - PLATELET COUNT DECREASED [None]
  - WHITE BLOOD CELL COUNT DECREASED [None]
